FAERS Safety Report 13000418 (Version 2)
Quarter: 2018Q4

REPORT INFORMATION
  Report Type: Spontaneous
  Country: FR (occurrence: FR)
  Receive Date: 20161206
  Receipt Date: 20181210
  Transmission Date: 20190204
  Serious: Yes (Death, Life-Threatening, Other)
  Sender: FDA-Public Use
  Company Number: PHHY2016FR164553

PATIENT
  Age: 13 Year
  Sex: Female

DRUGS (2)
  1. SOMATROPIN. [Suspect]
     Active Substance: SOMATROPIN
     Indication: GROWTH RETARDATION
     Dosage: 0.35 MG/KG, QW
     Route: 065
  2. ETOPOSIDE. [Suspect]
     Active Substance: ETOPOSIDE
     Indication: NEUROBLASTOMA
     Dosage: 1 UNK, CYCLIC
     Route: 065

REACTIONS (2)
  - Sarcoma [Fatal]
  - Injection site reaction [Fatal]
